FAERS Safety Report 18497272 (Version 2)
Quarter: 2020Q4

REPORT INFORMATION
  Report Type: Spontaneous
  Country: CI (occurrence: CI)
  Receive Date: 20201112
  Receipt Date: 20201216
  Transmission Date: 20210114
  Serious: Yes (Other)
  Sender: FDA-Public Use
  Company Number: CI-GLAXOSMITHKLINE-CH2020GSK217084

PATIENT
  Age: 23 Year
  Sex: Male

DRUGS (1)
  1. ATOVAQUONE + PROGUANIL HYDROCHLORIDE [Suspect]
     Active Substance: ATOVAQUONE\PROGUANIL HYDROCHLORIDE
     Indication: MALARIA PROPHYLAXIS
     Dosage: 350 MG (250/100 MG)
     Route: 048

REACTIONS (8)
  - Gastric mucosa erythema [Recovered/Resolved]
  - Oesophageal ulcer [Recovered/Resolved]
  - Pain [Recovered/Resolved]
  - Weight decreased [Recovered/Resolved]
  - Wrong technique in product usage process [Unknown]
  - Condition aggravated [Recovered/Resolved]
  - Hypophagia [Recovered/Resolved]
  - Chest pain [Recovered/Resolved]

NARRATIVE: CASE EVENT DATE: 201705
